FAERS Safety Report 24589242 (Version 3)
Quarter: 2025Q1

REPORT INFORMATION
  Report Type: Spontaneous
  Country: ES (occurrence: ES)
  Receive Date: 20241107
  Receipt Date: 20250213
  Transmission Date: 20250409
  Serious: Yes (Hospitalization, Other)
  Sender: IPSEN BIOPHARMACEUTICALS, INC.
  Company Number: ES-IPSEN Group, Research and Development-2024-22366

PATIENT
  Age: 16 Year
  Sex: Male
  Weight: 53 kg

DRUGS (16)
  1. BYLVAY [Suspect]
     Active Substance: ODEVIXIBAT
     Indication: Progressive familial intrahepatic cholestasis
     Route: 065
     Dates: start: 202407
  2. BYLVAY [Suspect]
     Active Substance: ODEVIXIBAT
     Route: 065
     Dates: start: 202408
  3. BYLVAY [Suspect]
     Active Substance: ODEVIXIBAT
     Dosage: (40/ KG) 4 CAPSULES DAILY IN THE MORNING
     Route: 065
     Dates: start: 20221121
  4. BYLVAY [Suspect]
     Active Substance: ODEVIXIBAT
     Route: 065
  5. BYLVAY [Suspect]
     Active Substance: ODEVIXIBAT
     Route: 065
     Dates: start: 20230616
  6. BYLVAY [Suspect]
     Active Substance: ODEVIXIBAT
     Route: 065
     Dates: start: 202210
  7. TACROLIMUS [Concomitant]
     Active Substance: TACROLIMUS
     Dosage: 6 MG DAILY AS A SINGLE DOSE IN THE MORNING
  8. CELLCEPT [Concomitant]
     Active Substance: MYCOPHENOLATE MOFETIL
     Dosage: (1GR/5 ML): 5 ML/12H
     Dates: start: 202411, end: 202412
  9. ASPIRIN [Concomitant]
     Active Substance: ASPIRIN
     Dosage: 50 MG EVERY 24 HOURS
  10. SODIUM BICARBONATE [Concomitant]
     Active Substance: SODIUM BICARBONATE
     Dosage: 1 GRAM IN THE MORNING MEAL
  11. URSOBILANE [Concomitant]
     Dosage: 300 MG TABLET 1 EVERY 12 HOURS
  12. CALCIFEDIOL [Concomitant]
     Active Substance: CALCIFEDIOL
     Dosage: 266 UG 1 PER MONTH
  13. KONAKION [Concomitant]
     Active Substance: PHYTONADIONE
     Dosage: 10 MG ONCE A WEEK
  14. FUADEK [Concomitant]
     Dosage: 3 CAPSULES PER DAY
  15. PIPERACILLIN SODIUM\TAZOBACTAM SODIUM [Concomitant]
     Active Substance: PIPERACILLIN SODIUM\TAZOBACTAM SODIUM
     Dosage: INTERMATE PIPERACILLIN TAZOBACTAN 4GR/8H FOR HOME USE (UP TO AND INCLUDING 31 DECEMBER)
  16. PEDIASURE PEPTIDE [Concomitant]
     Dosage: 2 PER DAY

REACTIONS (8)
  - Pyrexia [Unknown]
  - Cholangitis [Not Recovered/Not Resolved]
  - Hepatitis [Not Recovered/Not Resolved]
  - Cholelithiasis [Unknown]
  - Jaundice [Unknown]
  - Gamma-glutamyltransferase increased [Not Recovered/Not Resolved]
  - Transaminases increased [Not Recovered/Not Resolved]
  - Off label use [Unknown]

NARRATIVE: CASE EVENT DATE: 20240801
